FAERS Safety Report 10907792 (Version 1)
Quarter: 2015Q1

REPORT INFORMATION
  Report Type: Spontaneous
  Country: US (occurrence: US)
  Receive Date: 20150312
  Receipt Date: 20150312
  Transmission Date: 20150721
  Serious: No
  Sender: FDA-Public Use
  Company Number: US-INCYTE CORPORATION-2015IN000320

PATIENT
  Sex: Male

DRUGS (2)
  1. JAKAFI [Suspect]
     Active Substance: RUXOLITINIB
     Dosage: 10 MG, BID
     Route: 048
     Dates: start: 20140103
  2. THALOMID [Concomitant]
     Active Substance: THALIDOMIDE
     Dosage: 100 MG CAPSULE
     Route: 048

REACTIONS (4)
  - Lip swelling [Unknown]
  - Sinusitis [Unknown]
  - Swelling face [Unknown]
  - Drug dose omission [Unknown]
